FAERS Safety Report 8350615-3 (Version None)
Quarter: 2012Q2

REPORT INFORMATION
  Report Type: 
  Country: None (occurrence: None)
  Receive Date: 20120510
  Receipt Date: 20120507
  Transmission Date: 20120825
  Serious: Yes (Death, Other)
  Sender: FDA-Public Use
  Company Number: US-ELI_LILLY_AND_COMPANY-US201205002381

PATIENT
  Sex: Male

DRUGS (8)
  1. EFFIENT [Suspect]
     Indication: STENT PLACEMENT
     Dosage: 10 MG, QD
     Dates: start: 20120331
  2. PLAVIX [Concomitant]
     Dosage: UNK, UNKNOWN
  3. LOVENOX [Concomitant]
     Dosage: 13 DF, UNKNOWN
  4. ALTACE [Concomitant]
     Dosage: UNK, UNKNOWN
  5. ASPIRIN [Concomitant]
     Indication: ARTHRITIS
     Dosage: 8 U, QD
  6. NIACIN [Concomitant]
     Dosage: 2000 MG, QOD
  7. COUMADIN [Concomitant]
     Dosage: UNK, UNKNOWN
  8. ASPIRIN [Concomitant]
     Dosage: 1 U, QD

REACTIONS (7)
  - THROMBOSIS [None]
  - DEEP VEIN THROMBOSIS [None]
  - ANGIOPATHY [None]
  - DEATH [None]
  - CEREBRAL HAEMORRHAGE [None]
  - COUGH [None]
  - INTERNATIONAL NORMALISED RATIO INCREASED [None]
